FAERS Safety Report 4410983-1 (Version None)
Quarter: 2004Q3

REPORT INFORMATION
  Report Type: 
  Country: None (occurrence: None)
  Receive Date: 20040729
  Receipt Date: 20040719
  Transmission Date: 20050211
  Serious: Yes (Other)
  Sender: FDA-Public Use
  Company Number: GB-GLAXOSMITHKLINE-B0339574A

PATIENT
  Age: 79 Year
  Sex: Male

DRUGS (6)
  1. LAMOTRIGINE [Suspect]
     Dosage: 50MG THREE TIMES PER DAY
     Route: 048
     Dates: start: 20000101
  2. ATORVASTATIN CALCIUM [Suspect]
     Indication: BLOOD CHOLESTEROL INCREASED
     Route: 048
     Dates: start: 20040622
  3. MONOMAX SR [Concomitant]
     Dosage: 60MG PER DAY
     Route: 048
     Dates: start: 20010101
  4. ASPIRIN [Concomitant]
     Dosage: 75MG PER DAY
     Route: 048
     Dates: start: 20010101
  5. TRAVOPROST [Concomitant]
     Dosage: 2DROP PER DAY
     Route: 047
     Dates: start: 20030101
  6. BENDROFLUAZIDE [Concomitant]
     Dosage: 2.5MG PER DAY
     Route: 048
     Dates: start: 20030101, end: 20040706

REACTIONS (2)
  - DRUG INTERACTION [None]
  - PETIT MAL EPILEPSY [None]
